FAERS Safety Report 16109550 (Version 2)
Quarter: 2019Q2

REPORT INFORMATION
  Report Type: Spontaneous
  Country: US (occurrence: US)
  Receive Date: 20190324
  Receipt Date: 20190527
  Transmission Date: 20190711
  Serious: No
  Sender: FDA-Public Use
  Company Number: US-SA-2019SA073074

PATIENT
  Age: 62 Year
  Sex: Female

DRUGS (11)
  1. BENEFIBER [DEXTRIN] [Concomitant]
  2. PRALUENT [Suspect]
     Active Substance: ALIROCUMAB
     Indication: HYPERLIPIDAEMIA
     Dosage: 75 MG, QOW
     Route: 058
     Dates: start: 20190227
  3. ENBREL [Suspect]
     Active Substance: ETANERCEPT
     Dosage: UNK, UNK
  4. VITAMIN D2 [Concomitant]
     Active Substance: ERGOCALCIFEROL
  5. CLOBETASOL PROPIONATE. [Concomitant]
     Active Substance: CLOBETASOL PROPIONATE
  6. MIRTAZAPINE. [Concomitant]
     Active Substance: MIRTAZAPINE
  7. OMEPRAZOLE SODIUM;SODIUM BICARBONATE [Concomitant]
  8. TYLENOL ARTHRITIS PAIN [Concomitant]
     Active Substance: ACETAMINOPHEN
  9. FISH OIL [Concomitant]
     Active Substance: FISH OIL
  10. CYANOCOBALAMINE [Concomitant]
     Active Substance: CYANOCOBALAMIN
  11. ALPRAZOLAM. [Concomitant]
     Active Substance: ALPRAZOLAM

REACTIONS (7)
  - Muscular weakness [Unknown]
  - Malaise [Unknown]
  - Rhinitis [Unknown]
  - Neuralgia [Unknown]
  - Influenza [Unknown]
  - Nasal oedema [Unknown]
  - Headache [Unknown]

NARRATIVE: CASE EVENT DATE: 201903
